FAERS Safety Report 7808598-8 (Version None)
Quarter: 2011Q4

REPORT INFORMATION
  Report Type: 
  Country: None (occurrence: None)
  Receive Date: 20111012
  Receipt Date: 20111006
  Transmission Date: 20120403
  Serious: No
  Sender: FDA-Public Use
  Company Number: US-PFIZER INC-2011241315

PATIENT
  Age: 33 Year
  Sex: Female

DRUGS (3)
  1. XANAX [Concomitant]
     Dosage: UNK
  2. EFFEXOR XR [Suspect]
     Dosage: UNK
  3. ADDERALL 5 [Interacting]
     Dosage: UNK
     Dates: start: 20110101

REACTIONS (3)
  - ANXIETY [None]
  - ACNE [None]
  - DRUG INTERACTION [None]
